FAERS Safety Report 5104616-9 (Version None)
Quarter: 2006Q3

REPORT INFORMATION
  Report Type: 
  Country: None (occurrence: None)
  Receive Date: 20060914
  Receipt Date: 20060712
  Transmission Date: 20061208
  Serious: No
  Sender: FDA-Public Use
  Company Number: US-BRISTOL-MYERS SQUIBB COMPANY-13440128

PATIENT

DRUGS (7)
  1. BUSPAR [Suspect]
     Dates: start: 20060630
  2. HYZAAR [Concomitant]
     Dosage: DOSAGE FORM IS 50/12.5MG 2 TABLETS EVERY DAY.
  3. GLUCOPHAGE XR [Concomitant]
  4. LIPITOR [Concomitant]
  5. ZOLOFT [Concomitant]
  6. ACIPHEX [Concomitant]
  7. NEURONTIN [Concomitant]

REACTIONS (1)
  - EYE SWELLING [None]
